FAERS Safety Report 24146344 (Version 1)
Quarter: 2024Q3

REPORT INFORMATION
  Report Type: Spontaneous
  Country: AT (occurrence: None)
  Receive Date: 20240729
  Receipt Date: 20240729
  Transmission Date: 20241016
  Serious: Yes (Death, Hospitalization, Other)
  Sender: ASTRAZENECA
  Company Number: 2024A168542

PATIENT
  Age: 63 Year
  Sex: Female
  Weight: 55 kg

DRUGS (48)
  1. FASLODEX [Suspect]
     Active Substance: FULVESTRANT
     Indication: Breast cancer
     Route: 030
     Dates: start: 20201029, end: 20201111
  2. FASLODEX [Suspect]
     Active Substance: FULVESTRANT
     Indication: Breast cancer
     Route: 030
     Dates: start: 20201125, end: 20210110
  3. ABEMACICLIB [Suspect]
     Active Substance: ABEMACICLIB
     Indication: Breast cancer
     Route: 048
     Dates: start: 20201029, end: 20201211
  4. CAPECITABINE [Suspect]
     Active Substance: CAPECITABINE
     Indication: Breast cancer
     Route: 048
     Dates: start: 20200512, end: 20200519
  5. CAPECITABINE [Suspect]
     Active Substance: CAPECITABINE
     Indication: Breast cancer
     Route: 048
     Dates: start: 20200326, end: 20200430
  6. TYKERB [Suspect]
     Active Substance: LAPATINIB DITOSYLATE
     Indication: Breast cancer
     Dosage: 1000 MG, 1X/DAY
     Route: 048
     Dates: start: 20200829, end: 20201022
  7. TYKERB [Suspect]
     Active Substance: LAPATINIB DITOSYLATE
     Indication: Breast cancer
     Dosage: 1250 MG, 1X/DAY
     Route: 048
     Dates: start: 20200326, end: 20200723
  8. NAVELBINE [Suspect]
     Active Substance: VINORELBINE TARTRATE
     Indication: Breast cancer
     Dosage: 50.0MG UNKNOWN
     Route: 048
     Dates: start: 20181210, end: 20190206
  9. NAVELBINE [Suspect]
     Active Substance: VINORELBINE TARTRATE
     Indication: Breast cancer
     Dosage: 50.0MG UNKNOWN
     Route: 048
     Dates: start: 20180719, end: 20181130
  10. NAVELBINE [Suspect]
     Active Substance: VINORELBINE TARTRATE
     Indication: Breast cancer
     Dosage: 50.0MG UNKNOWN
     Route: 048
     Dates: start: 20190206, end: 20190705
  11. HERCEPTIN [Suspect]
     Active Substance: TRASTUZUMAB
     Indication: Breast cancer
     Route: 042
     Dates: start: 20180809, end: 20180809
  12. HERCEPTIN [Suspect]
     Active Substance: TRASTUZUMAB
     Indication: Breast cancer
     Route: 042
     Dates: start: 20180719, end: 20180719
  13. HERCEPTIN [Suspect]
     Active Substance: TRASTUZUMAB
     Indication: Breast cancer
     Route: 042
     Dates: start: 20180830, end: 20181105
  14. KADCYLA [Suspect]
     Active Substance: ADO-TRASTUZUMAB EMTANSINE
     Indication: Breast cancer
     Dosage: 201.6 MG, EVERY 3 WEEKS
     Route: 042
     Dates: start: 20190829, end: 20190829
  15. KADCYLA [Suspect]
     Active Substance: ADO-TRASTUZUMAB EMTANSINE
     Indication: Breast cancer
     Dosage: 143.1 MG, EVERY 3 WEEKS
     Route: 042
     Dates: start: 20191003, end: 20200213
  16. ONTRUZANT [Suspect]
     Active Substance: TRASTUZUMAB-DTTB
     Indication: Breast cancer
     Dosage: 336 MG, EVERY 3 WEEKS
     Route: 042
     Dates: start: 20181129, end: 20190516
  17. ONTRUZANT [Suspect]
     Active Substance: TRASTUZUMAB-DTTB
     Indication: Breast cancer
     Dosage: 318 MG, EVERY 3 WEEKS
     Route: 042
     Dates: start: 20201130, end: 20201221
  18. ONTRUZANT [Suspect]
     Active Substance: TRASTUZUMAB-DTTB
     Indication: Breast cancer
     Dosage: 324 MG, EVERY 3 WEEKS
     Route: 042
     Dates: start: 20190613, end: 20190704
  19. ONTRUZANT [Suspect]
     Active Substance: TRASTUZUMAB-DTTB
     Indication: Breast cancer
     Dosage: 424 MG, EVERY 3 WEEKS
     Route: 042
     Dates: start: 20201109, end: 20201109
  20. FEMARA [Suspect]
     Active Substance: LETROZOLE
     Indication: Breast cancer
     Dosage: FREQUENCY: O.D. - ONCE DAILY MOST RECENT DOSE PRIOR TO THE EVENT: 12/MAY/2020
     Route: 048
     Dates: start: 20190508, end: 20190819
  21. FEMARA [Suspect]
     Active Substance: LETROZOLE
     Indication: Breast cancer
     Route: 048
     Dates: start: 20200512, end: 20201022
  22. PERJETA [Suspect]
     Active Substance: PERTUZUMAB
     Indication: Breast cancer
     Dosage: 840 MG, EVERY 3 WEEKS
     Route: 042
     Dates: start: 20180719, end: 20180719
  23. PERJETA [Suspect]
     Active Substance: PERTUZUMAB
     Indication: Breast cancer
     Dosage: 420 MG, EVERY 3 WEEKS
     Route: 042
     Dates: start: 20180809, end: 20190704
  24. AROMASIN [Suspect]
     Active Substance: EXEMESTANE
     Indication: Breast cancer
     Dosage: O.D. - ONCE DAILY
     Route: 048
     Dates: start: 20180719, end: 20190507
  25. EUTHYROX [Concomitant]
     Active Substance: LEVOTHYROXINE SODIUM
  26. SUCRALFATE [Concomitant]
     Active Substance: SUCRALFATE
  27. ZOFRAN [Concomitant]
     Active Substance: ONDANSETRON HYDROCHLORIDE
     Indication: Nausea
     Dates: start: 20190919
  28. MAGNESIUM SUCCINATE [Concomitant]
     Dates: start: 20190819
  29. KYTRIL [Concomitant]
     Active Substance: GRANISETRON HYDROCHLORIDE
  30. ORNITHINE ASPARTATE [Concomitant]
     Active Substance: ORNITHINE ASPARTATE
  31. XGEVA [Concomitant]
     Active Substance: DENOSUMAB
     Dates: start: 20181215
  32. HALDOL [Concomitant]
     Active Substance: HALOPERIDOL
  33. DEXAMETHASONE [Concomitant]
     Active Substance: DEXAMETHASONE
     Indication: Vertigo
     Dates: start: 20191114
  34. PREDNISOLONE [Concomitant]
     Active Substance: PREDNISOLONE
  35. DEXPANTHENOL [Concomitant]
     Active Substance: DEXPANTHENOL
     Indication: Conjunctivitis
     Dates: start: 20190221
  36. NOVALGIN [Concomitant]
     Dates: start: 20180727
  37. RANITIDINE HYDROCHLORIDE [Concomitant]
     Active Substance: RANITIDINE HYDROCHLORIDE
  38. SUCRALFATE [Concomitant]
     Active Substance: SUCRALFATE
     Indication: Abdominal pain
     Dates: start: 20200512
  39. DIMETHINDENE [Concomitant]
     Active Substance: DIMETHINDENE
  40. VERTIROSAN [Concomitant]
     Indication: Vertigo
     Dates: start: 20191218
  41. CLAVULANATE POTASSIUM/AMOXICILLIN [Concomitant]
  42. HYDROMORPHONE HYDROCHLORIDE [Concomitant]
     Active Substance: HYDROMORPHONE HYDROCHLORIDE
     Dates: start: 20180727
  43. ESOMEPRAZOLE [Concomitant]
     Active Substance: ESOMEPRAZOLE
     Indication: Dysphagia
     Dates: start: 20200207
  44. POLYETHYLENE GLYCOLS [Concomitant]
     Active Substance: POLYETHYLENE GLYCOLS
     Dates: start: 20180719
  45. KONAKION [Concomitant]
     Active Substance: PHYTONADIONE
  46. MORPHINE [Concomitant]
     Active Substance: MORPHINE
  47. DEXABENE [Concomitant]
  48. IMODIUM [Concomitant]
     Active Substance: LOPERAMIDE HYDROCHLORIDE
     Indication: Diarrhoea
     Dates: start: 20180731

REACTIONS (4)
  - Hepatic failure [Fatal]
  - Disease progression [Unknown]
  - Mouth haemorrhage [Unknown]
  - Hepatic encephalopathy [Unknown]

NARRATIVE: CASE EVENT DATE: 20201130
